FAERS Safety Report 6801190-3 (Version None)
Quarter: 2010Q2

REPORT INFORMATION
  Report Type: 
  Country: None (occurrence: None)
  Receive Date: 20100629
  Receipt Date: 20100618
  Transmission Date: 20101027
  Serious: Yes (Other)
  Sender: FDA-Public Use
  Company Number: US-PFIZER INC-2010076602

PATIENT
  Age: 46 Year
  Sex: Female

DRUGS (12)
  1. CHANTIX [Suspect]
     Indication: SMOKING CESSATION THERAPY
     Dosage: 0.5 MG, 1X/DAY
     Route: 048
     Dates: start: 20060801, end: 20070101
  2. CHANTIX [Suspect]
     Dosage: UNK
     Dates: start: 20070701
  3. AMLODIPINE BESYLATE [Suspect]
     Dosage: UNK
     Route: 048
  4. NICOTINE [Concomitant]
     Dosage: UNK
     Route: 062
     Dates: start: 20070101, end: 20070101
  5. ACETYLSALICYLIC ACID [Concomitant]
     Indication: CARDIAC DISORDER
     Dosage: 81 MG, 1X/DAY
     Route: 048
  6. ALDACTONE [Concomitant]
     Indication: HYPERTENSION
     Dosage: 25 MG, UNK
     Route: 048
  7. PROTONIX [Concomitant]
     Indication: BARRETT'S OESOPHAGUS
     Dosage: 40 MG, 1X/DAY
     Route: 048
  8. LISINOPRIL [Concomitant]
     Indication: HYPERTENSION
     Dosage: UNK
     Route: 048
  9. CELEBREX [Concomitant]
     Indication: ANKYLOSING SPONDYLITIS
     Dosage: 200 MG, 1X/DAY
     Route: 048
  10. HYDROCHLOROTHIAZIDE [Concomitant]
     Dosage: 12.5 MG, 1X/DAY
     Route: 048
  11. VITAMIN C [Concomitant]
     Dosage: UNK
  12. PRENATAL VITAMINS [Concomitant]
     Dosage: UNK

REACTIONS (3)
  - ASTHMA [None]
  - BLOOD PRESSURE DECREASED [None]
  - HYPERTENSION [None]
